FAERS Safety Report 10273000 (Version 2)
Quarter: 2014Q3

REPORT INFORMATION
  Report Type: Report from Study
  Country: US (occurrence: US)
  Receive Date: 20140702
  Receipt Date: 20140715
  Transmission Date: 20150326
  Serious: Yes (Hospitalization, Other)
  Sender: FDA-Public Use
  Company Number: US-ACTELION-A-NJ2014-101257

PATIENT
  Age: 80 Year
  Sex: Male

DRUGS (6)
  1. LOPRESSOR [Concomitant]
     Active Substance: METOPROLOL TARTRATE
     Dosage: 6.25 MG, BID
  2. FERROUS SULFATE [Concomitant]
     Active Substance: FERROUS SULFATE\FERROUS SULFATE, DRIED
  3. SILDENAFIL [Concomitant]
     Active Substance: SILDENAFIL
     Dosage: 25 MG, Q8H
  4. TRACLEER [Suspect]
     Active Substance: BOSENTAN\BOSENTAN MONOHYDRATE
     Indication: PULMONARY ARTERIAL HYPERTENSION
     Dosage: 62.5 MG, BID
     Route: 048
     Dates: start: 201203
  5. LEVOTHYROXINE [Concomitant]
     Active Substance: LEVOTHYROXINE
     Dosage: .075 MG, QD
  6. DIGOXIN. [Concomitant]
     Active Substance: DIGOXIN
     Dosage: 0.125 MG, QOD

REACTIONS (7)
  - Chronic respiratory failure [Unknown]
  - Acute respiratory failure [Unknown]
  - Renal failure acute [Unknown]
  - Dialysis [Not Recovered/Not Resolved]
  - Renal failure chronic [Unknown]
  - Cardiac failure congestive [Unknown]
  - Disease progression [Unknown]

NARRATIVE: CASE EVENT DATE: 201305
